FAERS Safety Report 16204823 (Version 3)
Quarter: 2019Q2

REPORT INFORMATION
  Report Type: Report from Study
  Country: US (occurrence: US)
  Receive Date: 20190416
  Receipt Date: 20190503
  Transmission Date: 20190711
  Serious: Yes (Hospitalization)
  Sender: FDA-Public Use
  Company Number: US-PFIZER INC-2019156641

PATIENT
  Age: 74 Year
  Sex: Female
  Weight: 73.16 kg

DRUGS (10)
  1. BLINDED PLACEBO [Suspect]
     Active Substance: INVESTIGATIONAL PRODUCT
     Indication: IMMUNISATION
     Dosage: SINGLE DOSE
     Route: 030
     Dates: start: 20181003, end: 20181003
  2. BLINDED PF-06290510 [Suspect]
     Active Substance: INVESTIGATIONAL PRODUCT
     Indication: IMMUNISATION
     Dosage: SINGLE DOSE
     Route: 030
     Dates: start: 20181003, end: 20181003
  3. HYDRALAZINE [Concomitant]
     Active Substance: HYDRALAZINE HYDROCHLORIDE
     Indication: CARDIAC FAILURE CONGESTIVE
     Dosage: UNK
     Route: 048
     Dates: end: 201903
  4. BLINDED PLACEBO [Suspect]
     Active Substance: INVESTIGATIONAL PRODUCT
     Indication: IMMUNISATION
     Dosage: SINGLE DOSE
     Route: 030
     Dates: start: 20181003, end: 20181003
  5. GABAPENTIN. [Suspect]
     Active Substance: GABAPENTIN
     Indication: SPINAL STENOSIS
     Dosage: 100 MG, CAPSULE 3X/DAY
     Route: 048
     Dates: start: 201903, end: 20190328
  6. LOSARTAN. [Suspect]
     Active Substance: LOSARTAN
     Indication: HYPERTENSION
     Dosage: 100 MG (1 TABLET), 1X/DAY
     Route: 048
     Dates: start: 2014, end: 20190331
  7. DESYREL [Suspect]
     Active Substance: TRAZODONE HYDROCHLORIDE
     Indication: ANXIETY
     Dosage: 50 MG, 2X/DAY
     Route: 048
     Dates: start: 2012
  8. METOPROLOL. [Suspect]
     Active Substance: METOPROLOL
     Indication: HYPERTENSION
     Dosage: 50 MG, 2X/DAY, DECREASED TO 25MG ON 31MAR2019
     Route: 048
     Dates: start: 201808
  9. BLINDED PF-06290510 [Suspect]
     Active Substance: INVESTIGATIONAL PRODUCT
     Indication: IMMUNISATION
     Dosage: SINGLE DOSE
     Route: 030
     Dates: start: 20181003, end: 20181003
  10. FUROSEMIDE. [Suspect]
     Active Substance: FUROSEMIDE
     Indication: CARDIAC FAILURE CONGESTIVE
     Dosage: 20 MG, 2X/DAY, DECREASED AS NEEDED FROM 30MAR2019
     Route: 048
     Dates: start: 201806, end: 20190331

REACTIONS (1)
  - Presyncope [Recovered/Resolved]

NARRATIVE: CASE EVENT DATE: 20190329
